FAERS Safety Report 5917658-8 (Version None)
Quarter: 2008Q4

REPORT INFORMATION
  Report Type: 
  Country: None (occurrence: None)
  Receive Date: 20081014
  Receipt Date: 20081006
  Transmission Date: 20090506
  Serious: Yes (Life-Threatening, Hospitalization, Other)
  Sender: FDA-Public Use
  Company Number: FR-BRISTOL-MYERS SQUIBB COMPANY-14368112

PATIENT
  Age: 66 Year
  Sex: Female

DRUGS (7)
  1. GLUCOPHAGE [Suspect]
     Indication: DIABETES MELLITUS
     Route: 048
     Dates: end: 20080614
  2. ACARBOSE [Concomitant]
  3. LANTUS [Concomitant]
  4. FLUDEX [Concomitant]
  5. COAPROVEL [Concomitant]
  6. CARDENSIEL [Concomitant]
  7. CORDARONE [Concomitant]

REACTIONS (4)
  - ACUTE PULMONARY OEDEMA [None]
  - LACTIC ACIDOSIS [None]
  - OVERDOSE [None]
  - RENAL FAILURE ACUTE [None]
